FAERS Safety Report 19929838 (Version 1)
Quarter: 2021Q4

REPORT INFORMATION
  Report Type: Report from Study
  Country: US (occurrence: US)
  Receive Date: 20211007
  Receipt Date: 20211007
  Transmission Date: 20220303
  Serious: No
  Sender: FDA-Public Use
  Company Number: US-KYOWAKIRIN-2021BKK016609

PATIENT

DRUGS (1)
  1. CRYSVITA [Suspect]
     Active Substance: BUROSUMAB-TWZA
     Indication: Hereditary hypophosphataemic rickets
     Dosage: 80 MG, EVERY 4 WEEKS
     Route: 065

REACTIONS (3)
  - Arthralgia [Not Recovered/Not Resolved]
  - Condition aggravated [Not Recovered/Not Resolved]
  - Inflammation [Unknown]
